FAERS Safety Report 23483402 (Version 1)
Quarter: 2024Q1

REPORT INFORMATION
  Report Type: Spontaneous
  Country: US (occurrence: US)
  Receive Date: 20240205
  Receipt Date: 20240205
  Transmission Date: 20240409
  Serious: No
  Sender: FDA-Public Use
  Company Number: US-PFIZER INC-PV202400013820

PATIENT
  Age: 78 Year
  Sex: Female
  Weight: 62.6 kg

DRUGS (3)
  1. PAXLOVID [Suspect]
     Active Substance: NIRMATRELVIR\RITONAVIR
     Indication: COVID-19 treatment
     Route: 048
  2. MODERNA COVID-19 VACCINE [Suspect]
     Active Substance: ELASOMERAN
     Indication: COVID-19 immunisation
     Dosage: UNK, SINGLE
     Route: 030
     Dates: start: 20210421, end: 20210421
  3. MODERNA COVID-19 VACCINE [Suspect]
     Active Substance: ELASOMERAN
     Dosage: UNK
     Route: 030
     Dates: start: 20210324, end: 20210324

REACTIONS (13)
  - Balance disorder [Unknown]
  - Vomiting [Unknown]
  - Vertigo [Recovering/Resolving]
  - Cheilitis [Not Recovered/Not Resolved]
  - Oral pain [Recovered/Resolved]
  - Lethargy [Unknown]
  - COVID-19 [Unknown]
  - Vaccination failure [Unknown]
  - Dysgeusia [Recovered/Resolved]
  - Dizziness [Not Recovered/Not Resolved]
  - Abdominal discomfort [Recovered/Resolved]
  - COVID-19 [Unknown]
  - Disease recurrence [Unknown]

NARRATIVE: CASE EVENT DATE: 20210327
